FAERS Safety Report 5697676-8 (Version None)
Quarter: 2008Q2

REPORT INFORMATION
  Report Type: 
  Country: None (occurrence: None)
  Receive Date: 20080408
  Receipt Date: 20080402
  Transmission Date: 20081010
  Serious: Yes (Life-Threatening, Hospitalization, Other)
  Sender: FDA-Public Use
  Company Number: A0714355B

PATIENT
  Age: 88 Year
  Sex: Male

DRUGS (13)
  1. LAPATINIB [Suspect]
     Dosage: 1500MG PER DAY
     Route: 048
     Dates: start: 20080214, end: 20080329
  2. RADIATION THERAPY [Suspect]
     Dates: start: 20080221
  3. CIPROFLOXACIN [Concomitant]
     Dates: start: 20080227, end: 20080325
  4. MOUTHWASH [Concomitant]
  5. NYSTATIN [Concomitant]
     Dates: start: 20080312
  6. ONDANSETRON [Concomitant]
     Dosage: 4MG TWICE PER DAY
  7. OXYCODONE HCL [Concomitant]
     Dosage: 5MG SIX TIMES PER DAY
  8. SENNOSIDES [Concomitant]
     Dosage: 8.6MG THREE TIMES PER DAY
  9. CHLORHEXIDINE GLUCONATE [Concomitant]
     Dosage: 2TBS TWICE PER DAY
  10. PROCHLORPERAZINE MALEATE [Concomitant]
     Dosage: 10MG FOUR TIMES PER DAY
  11. MORPHINE SUL INJ [Concomitant]
     Dosage: 15MG THREE TIMES PER DAY
  12. MAGNESIUM CITRATE [Concomitant]
     Dosage: .5BT AS REQUIRED
  13. HYDROCORTISONE + PRAMOXINE [Concomitant]
     Route: 054

REACTIONS (12)
  - ALANINE AMINOTRANSFERASE INCREASED [None]
  - ASPARTATE AMINOTRANSFERASE INCREASED [None]
  - BLOOD ALKALINE PHOSPHATASE INCREASED [None]
  - CHEST DISCOMFORT [None]
  - DECREASED APPETITE [None]
  - DYSPNOEA [None]
  - EPIGLOTTIC OEDEMA [None]
  - LARYNGEAL OEDEMA [None]
  - OLIGODIPSIA [None]
  - ORTHOPNOEA [None]
  - PNEUMONIA ASPIRATION [None]
  - RADIATION INJURY [None]
